FAERS Safety Report 17848775 (Version 1)
Quarter: 2020Q2

REPORT INFORMATION
  Report Type: Spontaneous
  Country: DE (occurrence: DE)
  Receive Date: 20200602
  Receipt Date: 20200602
  Transmission Date: 20200714
  Serious: Yes (Other)
  Sender: FDA-Public Use
  Company Number: NVSC2020DE150363

PATIENT
  Sex: Female

DRUGS (6)
  1. DASATINIB. [Concomitant]
     Active Substance: DASATINIB
     Indication: PHILADELPHIA CHROMOSOME POSITIVE
  2. IMATINIB. [Suspect]
     Active Substance: IMATINIB MESYLATE
     Indication: PHILADELPHIA CHROMOSOME POSITIVE
  3. DASATINIB. [Concomitant]
     Active Substance: DASATINIB
     Indication: CHRONIC MYELOID LEUKAEMIA
     Dosage: UNK
     Route: 065
     Dates: start: 201710, end: 201712
  4. GLIVEC [Suspect]
     Active Substance: IMATINIB MESYLATE
     Indication: CHRONIC MYELOID LEUKAEMIA
     Dosage: 600 MG, QD
     Route: 065
     Dates: start: 199912, end: 201503
  5. GLIVEC [Suspect]
     Active Substance: IMATINIB MESYLATE
     Indication: PHILADELPHIA CHROMOSOME POSITIVE
     Dosage: 400 MG, QD
     Route: 065
     Dates: start: 201504, end: 201707
  6. IMATINIB. [Suspect]
     Active Substance: IMATINIB MESYLATE
     Indication: CHRONIC MYELOID LEUKAEMIA
     Dosage: 400 MG
     Route: 065
     Dates: start: 201712, end: 201803

REACTIONS (6)
  - Renal failure [Unknown]
  - Anaemia macrocytic [Unknown]
  - Giardiasis [Unknown]
  - Cytogenetic analysis abnormal [Unknown]
  - Gastroenteritis [Unknown]
  - Insulin-requiring type 2 diabetes mellitus [Unknown]

NARRATIVE: CASE EVENT DATE: 2008
